FAERS Safety Report 16219664 (Version 1)
Quarter: 2019Q2

REPORT INFORMATION
  Report Type: Spontaneous
  Country: FR (occurrence: FR)
  Receive Date: 20190420
  Receipt Date: 20190420
  Transmission Date: 20190711
  Serious: Yes (Other)
  Sender: FDA-Public Use
  Company Number: FR-ACCORD-122962

PATIENT
  Sex: Male
  Weight: 68 kg

DRUGS (6)
  1. FLUOROURACILE ACCORD [Suspect]
     Active Substance: FLUOROURACIL
     Indication: GASTRIC CANCER
     Route: 042
     Dates: start: 201802, end: 20180807
  2. IRINOTECAN MEDAC [Suspect]
     Active Substance: IRINOTECAN
     Indication: GASTRIC CANCER
     Route: 042
     Dates: start: 201802, end: 20180807
  3. CORTANCYL [Concomitant]
     Active Substance: PREDNISONE
     Indication: DIVERTICULITIS
     Route: 048
     Dates: start: 201802
  4. OXALIPLATINE ACCORD [Suspect]
     Active Substance: OXALIPLATIN
     Indication: GASTRIC CANCER
     Route: 042
     Dates: start: 201802, end: 20180807
  5. ESOMEPRAZOLE/ESOMEPRAZOLE MAGNESIUM/ESOMEPRAZOLE SODIUM [Concomitant]
     Indication: PEPTIC ULCER
     Route: 048
     Dates: start: 201802
  6. PERINDOPRIL/PERINDOPRIL ERBUMINE [Concomitant]
     Indication: HYPERTENSION
     Route: 048
     Dates: start: 201802

REACTIONS (1)
  - Epididymitis [Recovering/Resolving]

NARRATIVE: CASE EVENT DATE: 20180901
